FAERS Safety Report 9616005 (Version 2)
Quarter: 2013Q4

REPORT INFORMATION
  Report Type: Spontaneous
  Country: US (occurrence: US)
  Receive Date: 20131011
  Receipt Date: 20131011
  Transmission Date: 20140711
  Serious: No
  Sender: FDA-Public Use
  Company Number: US-PURDUE-USA-2013-0099519

PATIENT
  Sex: Female

DRUGS (2)
  1. BUTRANS [Suspect]
     Indication: PAIN
     Dosage: 5 MCG/HR, 1/WEEK
     Route: 062
     Dates: start: 201301
  2. BUTRANS [Suspect]
     Dosage: 10 MCG/HR, 1/WEEK
     Route: 062

REACTIONS (7)
  - Pain [Unknown]
  - Drug intolerance [Unknown]
  - Application site pain [Unknown]
  - Nausea [Unknown]
  - Dizziness [Unknown]
  - Inadequate analgesia [Unknown]
  - Abdominal discomfort [Unknown]
